FAERS Safety Report 8261993-8 (Version None)
Quarter: 2012Q2

REPORT INFORMATION
  Report Type: 
  Country: None (occurrence: None)
  Receive Date: 20120405
  Receipt Date: 20120329
  Transmission Date: 20120825
  Serious: Yes (Hospitalization, Congenital Anomaly, Other)
  Sender: FDA-Public Use
  Company Number: US-PFIZER INC-2011105792

PATIENT
  Sex: Female
  Weight: 2.8 kg

DRUGS (1)
  1. EFFEXOR [Suspect]
     Indication: DEPRESSION
     Dosage: UNK
     Route: 064

REACTIONS (9)
  - FOETAL EXPOSURE DURING PREGNANCY [None]
  - CONGENITAL PULMONARY VALVE ATRESIA [None]
  - CONGENITAL PULMONARY ARTERY ANOMALY [None]
  - ATRIAL SEPTAL DEFECT [None]
  - VENTRICULAR SEPTAL DEFECT [None]
  - CARDIOMEGALY [None]
  - FALLOT'S TETRALOGY [None]
  - PATENT DUCTUS ARTERIOSUS [None]
  - RIGHT AORTIC ARCH [None]
